FAERS Safety Report 4652192-7 (Version None)
Quarter: 2005Q2

REPORT INFORMATION
  Report Type: 
  Country: None (occurrence: None)
  Receive Date: 20050502
  Receipt Date: 20050418
  Transmission Date: 20051028
  Serious: Yes (Other)
  Sender: FDA-Public Use
  Company Number: 2005057259

PATIENT
  Age: 64 Year
  Sex: Female

DRUGS (2)
  1. BEXTRA [Suspect]
     Indication: POST PROCEDURAL COMPLICATION
     Dosage: 40 MG (40 MG, 1 IN 1 D) ORAL
     Route: 048
     Dates: start: 20040818, end: 20040818
  2. TAMOXIFEN CITRATE [Concomitant]

REACTIONS (1)
  - SKIN EXFOLIATION [None]
